FAERS Safety Report 4801271-X (Version None)
Quarter: 2005Q4

REPORT INFORMATION
  Report Type: 
  Country: None (occurrence: None)
  Receive Date: 20051017
  Receipt Date: 20051012
  Transmission Date: 20060501
  Serious: Yes (Hospitalization)
  Sender: FDA-Public Use
  Company Number: AU-MERCK-0510AUS00085

PATIENT
  Age: 80 Year
  Sex: Female

DRUGS (5)
  1. ZETIA [Suspect]
     Indication: BLOOD CHOLESTEROL INCREASED
     Route: 048
     Dates: start: 20050801, end: 20050901
  2. ZETIA [Suspect]
     Route: 048
     Dates: start: 20050901
  3. IRBESARTAN [Concomitant]
     Route: 065
  4. METOPROLOL TARTRATE [Concomitant]
     Route: 065
  5. METFORMIN HYDROCHLORIDE [Concomitant]
     Route: 065

REACTIONS (4)
  - CARDIAC DISORDER [None]
  - LOWER LIMB FRACTURE [None]
  - MIGRAINE [None]
  - STOMACH DISCOMFORT [None]
